FAERS Safety Report 7432491-6 (Version None)
Quarter: 2011Q2

REPORT INFORMATION
  Report Type: 
  Country: None (occurrence: None)
  Receive Date: 20110422
  Receipt Date: 20110407
  Transmission Date: 20111010
  Serious: No
  Sender: FDA-Public Use
  Company Number: US-B.I. PHARMACEUTICALS,INC./RIDGEFIELD-2011-BP-10311BP

PATIENT
  Sex: Female

DRUGS (12)
  1. DIGOXIN [Concomitant]
     Indication: ATRIAL FIBRILLATION
  2. AMBIEN [Concomitant]
     Indication: SLEEP DISORDER
  3. TOPROL-XL [Concomitant]
     Indication: ATRIAL FIBRILLATION
  4. PRADAXA [Suspect]
     Indication: ATRIAL FIBRILLATION
     Dosage: 300 MG
     Route: 048
     Dates: start: 20110301
  5. DILTIAZEM [Concomitant]
     Indication: HYPERTENSION
  6. REMERON [Concomitant]
     Indication: SLEEP DISORDER
  7. LEVOTHYROXINE SODIUM [Concomitant]
     Indication: THYROID OPERATION
  8. DILTIAZEM [Concomitant]
     Indication: ATRIAL FIBRILLATION
  9. TOPROL-XL [Concomitant]
     Indication: HYPERTENSION
  10. DIGOXIN [Concomitant]
     Indication: HYPERTENSION
  11. FENTANYL-100 [Concomitant]
     Indication: RHEUMATOID ARTHRITIS
  12. SIMVASTATIN [Concomitant]
     Indication: BLOOD CHOLESTEROL INCREASED

REACTIONS (2)
  - ABDOMINAL PAIN UPPER [None]
  - GALLBLADDER DISORDER [None]
